FAERS Safety Report 6138121-8 (Version None)
Quarter: 2009Q1

REPORT INFORMATION
  Report Type: 
  Country: None (occurrence: None)
  Receive Date: 20090331
  Receipt Date: 20090319
  Transmission Date: 20090719
  Serious: Yes (Congenital Anomaly)
  Sender: FDA-Public Use
  Company Number: FR-AVENTIS-200812280FR

PATIENT
  Age: 0 Day
  Sex: Male
  Weight: 2.31 kg

DRUGS (2)
  1. ARAVA [Suspect]
     Route: 064
     Dates: start: 20080226, end: 20080326
  2. ORAL CONTRACEPTIVE DRUG NOS [Concomitant]
     Route: 048
     Dates: end: 20080101

REACTIONS (2)
  - CRYPTORCHISM [None]
  - INGUINAL HERNIA [None]
